FAERS Safety Report 23591745 (Version 2)
Quarter: 2024Q1

REPORT INFORMATION
  Report Type: Spontaneous
  Country: US (occurrence: US)
  Receive Date: 20240304
  Receipt Date: 20240321
  Transmission Date: 20240410
  Serious: No
  Sender: FDA-Public Use
  Company Number: US-PFIZER INC-202400053264

PATIENT
  Age: 14 Year
  Sex: Male
  Weight: 42 kg

DRUGS (1)
  1. NGENLA [Suspect]
     Active Substance: SOMATROGON-GHLA
     Indication: Hypopituitarism
     Dosage: 27.5 MG, ONCE A WEEK
     Route: 058
     Dates: start: 20240206, end: 20240227

REACTIONS (2)
  - Injection site reaction [Recovering/Resolving]
  - Injection site rash [Unknown]

NARRATIVE: CASE EVENT DATE: 20240227
